FAERS Safety Report 10727868 (Version 2)
Quarter: 2015Q1

REPORT INFORMATION
  Report Type: Report from Study
  Country: BR (occurrence: BR)
  Receive Date: 20150121
  Receipt Date: 20150121
  Transmission Date: 20150721
  Serious: Yes (Other)
  Sender: FDA-Public Use
  Company Number: PHHY2015BR006198

PATIENT
  Sex: Male
  Weight: 87 kg

DRUGS (11)
  1. SINVASTATINA [Suspect]
     Active Substance: SIMVASTATIN
     Indication: BLOOD CHOLESTEROL INCREASED
     Dosage: 1 DF, QHS
     Route: 065
  2. ENALAPRIL [Suspect]
     Active Substance: ENALAPRIL
     Indication: HYPERTENSION
     Dosage: 1 DF, BID (1TABLET PER MORNING AND 1 TABLET AT NIGHT)
     Route: 065
  3. ONBREZ [Suspect]
     Active Substance: INDACATEROL
     Indication: PULMONARY GRANULOMA
     Dosage: 1 DF, QD
     Route: 065
  4. ACIDO FOLICO [Suspect]
     Active Substance: CYANOCOBALAMIN\FOLIC ACID\PYRIDOXINE HYDROCHLORIDE
     Indication: VITAMIN SUPPLEMENTATION
     Dosage: 1 DF, QD
     Route: 065
     Dates: start: 201305
  5. ROSUVASTATIN [Suspect]
     Active Substance: ROSUVASTATIN
     Indication: BLOOD CHOLESTEROL INCREASED
     Dosage: 1 DF, QD
     Route: 065
  6. ROSULIB [Suspect]
     Active Substance: ROSUVASTATIN
     Indication: PRODUCT USED FOR UNKNOWN INDICATION
     Route: 065
  7. PREDNISONA [Suspect]
     Active Substance: PREDNISONE
     Dosage: 10 MG, UNK
     Route: 065
  8. HIDROCLOROTIAZIDA [Suspect]
     Active Substance: HYDROCHLOROTHIAZIDE
     Indication: DIURETIC THERAPY
     Dosage: 1 DF, QD
     Route: 065
  9. MONOCORDIL [Suspect]
     Active Substance: ISOSORBIDE MONONITRATE
     Indication: MYOCARDIAL ISCHAEMIA
     Dosage: 1 DF, BID (AT MORNING AND NIGHT)
     Route: 065
  10. PREDNISONA [Suspect]
     Active Substance: PREDNISONE
     Indication: PULMONARY GRANULOMA
     Dosage: 20 MG, UNK
     Route: 065
     Dates: start: 201305
  11. PREDNISONA [Suspect]
     Active Substance: PREDNISONE
     Dosage: 5 MG, UNK
     Route: 065
     Dates: end: 20141221

REACTIONS (3)
  - Cataract [Unknown]
  - Blindness unilateral [Unknown]
  - Product use issue [Unknown]
